FAERS Safety Report 7398135-7 (Version None)
Quarter: 2011Q2

REPORT INFORMATION
  Report Type: 
  Country: None (occurrence: None)
  Receive Date: 20110406
  Receipt Date: 20110323
  Transmission Date: 20111010
  Serious: Yes (Other)
  Sender: FDA-Public Use
  Company Number: TW-WATSON-2011-04434

PATIENT
  Age: 44 Year
  Sex: Male

DRUGS (3)
  1. DIVALPROEX SODIUM [Suspect]
     Indication: SCHIZOPHRENIA
     Dosage: 1000 MG, DAILY
     Dates: start: 20100301
  2. QUETIAPINE [Suspect]
     Indication: SCHIZOPHRENIA
     Dosage: UNK
     Dates: start: 20091101, end: 20100301
  3. QUETIAPINE [Suspect]
     Dosage: GRADUALLY TITRATED TO 1000 MG PER DAY
     Dates: start: 20100301

REACTIONS (3)
  - HYPERCHOLESTEROLAEMIA [None]
  - HYPERTRIGLYCERIDAEMIA [None]
  - DRUG INTERACTION [None]
